FAERS Safety Report 8987058 (Version 1)
Quarter: 2012Q4

REPORT INFORMATION
  Report Type: 
  Country: GB (occurrence: GB)
  Receive Date: 20121226
  Receipt Date: 20121226
  Transmission Date: 20130627
  Serious: Yes (Other)
  Sender: FDA-Public Use
  Company Number: PHHY2012GB116714

PATIENT
  Age: 91 Year
  Sex: Male
  Weight: 76.2 kg

DRUGS (23)
  1. FENTANYL [Suspect]
     Indication: PAIN
     Dosage: 25 ug/hr, UNK
     Route: 062
     Dates: start: 20121112
  2. FENTANYL [Suspect]
     Dosage: 37.5 ug/hr, (12.5 ug/hr and 25 ug/hr)
     Route: 062
     Dates: start: 20121115
  3. HALOPERIDOL [Suspect]
     Dosage: 1.5 mg, QD
     Route: 048
     Dates: start: 20121116
  4. OMEPRAZOLE [Concomitant]
     Dosage: 20 mg, QD
     Route: 048
     Dates: start: 20121114
  5. LISINOPRIL [Concomitant]
     Indication: BLOOD PRESSURE
     Dosage: 5 mg, QD
     Route: 048
     Dates: start: 20121127
  6. LISINOPRIL [Concomitant]
     Dosage: 10 mg, QD
     Route: 048
     Dates: start: 20121116
  7. DEXAMETHASONE [Concomitant]
     Indication: DECREASED APPETITE
     Dosage: 4 mg, QD
     Route: 048
     Dates: start: 20121108
  8. DEXAMETHASONE [Concomitant]
     Dosage: 2 mg, QD
     Route: 048
     Dates: start: 20121129
  9. METOCLOPRAMIDE [Concomitant]
     Dosage: 10 mg, TID
     Route: 048
     Dates: start: 20121116
  10. METOCLOPRAMIDE [Concomitant]
     Dosage: 10 mg, BID
     Route: 048
     Dates: start: 20121201
  11. HYPROMELLOSE [Concomitant]
     Route: 047
     Dates: start: 20121116
  12. IBULEVE [Concomitant]
     Indication: PAIN
     Route: 061
     Dates: start: 20121116
  13. CANESTEN [Concomitant]
     Route: 061
     Dates: start: 20121203
  14. CARBOCISTEINE [Concomitant]
     Dosage: 375 mg, BID
     Route: 048
     Dates: start: 20121203
  15. ORAMORPH [Concomitant]
     Route: 048
  16. MORPHINE [Concomitant]
     Dosage: 10 mg, UNK
     Route: 058
  17. LEVOMEPROMAZINE [Concomitant]
     Dosage: 6.25 mg, QID
     Route: 065
  18. GLYCOPYRRONIUM [Concomitant]
     Route: 058
  19. ZOPICLONE [Concomitant]
     Dosage: 3.75 mg, QD
     Route: 048
  20. MIDAZOLAM [Concomitant]
     Dosage: 10 mg, UNK
     Route: 065
  21. MIDAZOLAM [Concomitant]
     Dosage: 2.5 mg, QH
     Route: 065
  22. PARACETAMOL [Concomitant]
     Indication: MUSCULOSKELETAL PAIN
     Dosage: 1 g, QD
     Route: 048
     Dates: start: 20121126
  23. PARACETAMOL [Concomitant]
     Dosage: 1 g, TID
     Route: 048
     Dates: start: 20121117

REACTIONS (21)
  - Intestinal obstruction [Unknown]
  - General physical health deterioration [Unknown]
  - Memory impairment [Unknown]
  - Ascites [Unknown]
  - Dyspnoea [Unknown]
  - Asthenia [Unknown]
  - Incontinence [Unknown]
  - Nausea [Unknown]
  - Decreased appetite [Not Recovered/Not Resolved]
  - Weight decreased [Not Recovered/Not Resolved]
  - Fatigue [Not Recovered/Not Resolved]
  - Mobility decreased [Not Recovered/Not Resolved]
  - Abdominal pain [Unknown]
  - Diarrhoea [Unknown]
  - Constipation [Unknown]
  - Dysphonia [Unknown]
  - Buttock crushing [Unknown]
  - Somnolence [Unknown]
  - Aphagia [Unknown]
  - Disorientation [Unknown]
  - Wrong technique in drug usage process [Unknown]
